FAERS Safety Report 4492070-X (Version None)
Quarter: 2004Q4

REPORT INFORMATION
  Report Type: 
  Country: None (occurrence: None)
  Receive Date: 20041103
  Receipt Date: 20040910
  Transmission Date: 20050328
  Serious: Yes (Other)
  Sender: FDA-Public Use
  Company Number: PHBS2004CA12089

PATIENT
  Age: 47 Year
  Sex: Female
  Weight: 88 kg

DRUGS (6)
  1. DIOVAN [Suspect]
     Dosage: 160 MG, QD
     Route: 048
     Dates: start: 20040927
  2. EZETROL [Concomitant]
     Dosage: 10 MG, QD
     Route: 048
  3. METOPROLOL SUCCINATE [Concomitant]
     Dosage: 50 MG, QD
     Route: 048
  4. PLAVIX [Concomitant]
     Dosage: 75 MG, QD
     Route: 048
  5. MONOPRIL [Concomitant]
     Dosage: 10 MG, QD
     Route: 048
  6. PANTOPRAZOLE [Concomitant]
     Dosage: 40 MG, QD
     Route: 048

REACTIONS (3)
  - ANGINA PECTORIS [None]
  - BLOOD PRESSURE INCREASED [None]
  - DIZZINESS [None]
